FAERS Safety Report 4625237-8 (Version None)
Quarter: 2005Q2

REPORT INFORMATION
  Report Type: 
  Country: None (occurrence: None)
  Receive Date: 20050401
  Receipt Date: 20050321
  Transmission Date: 20051028
  Serious: Yes (Hospitalization)
  Sender: FDA-Public Use
  Company Number: ZA-ROCHE-399186

PATIENT
  Age: 51 Year
  Sex: Female

DRUGS (2)
  1. CAPECITABINE [Suspect]
     Indication: BREAST CANCER
     Dosage: INTERMITTENT THERAPY: DAILY FOR TWO WEEKS FOLLOWED BY ONE WEEK REST.
     Route: 048
     Dates: start: 20040830, end: 20050118
  2. ATENOLOL [Concomitant]
     Dates: start: 19950615

REACTIONS (1)
  - CORNEAL ULCER [None]
